FAERS Safety Report 23969709 (Version 1)
Quarter: 2024Q2

REPORT INFORMATION
  Report Type: Spontaneous
  Country: US (occurrence: US)
  Receive Date: 20240613
  Receipt Date: 20240613
  Transmission Date: 20240715
  Serious: No
  Sender: FDA-Public Use
  Company Number: US-002147023-NVSC2024US123404

PATIENT
  Sex: Female

DRUGS (1)
  1. MEKINIST [Suspect]
     Active Substance: TRAMETINIB DIMETHYL SULFOXIDE
     Indication: Malignant peritoneal neoplasm
     Dosage: 2 MG, QD (ONCE DAILY)
     Route: 048
     Dates: start: 202404

REACTIONS (4)
  - Diarrhoea [Unknown]
  - Haemoptysis [Unknown]
  - Peripheral swelling [Unknown]
  - Dyspnoea [Unknown]
